FAERS Safety Report 5874578-5 (Version None)
Quarter: 2008Q3

REPORT INFORMATION
  Report Type: 
  Country: None (occurrence: None)
  Receive Date: 20080905
  Receipt Date: 20080905
  Transmission Date: 20090109
  Serious: Yes (Hospitalization)
  Sender: FDA-Public Use
  Company Number: None

PATIENT
  Sex: Female
  Weight: 70.8 kg

DRUGS (2)
  1. IRESSA [Suspect]
     Indication: NON-SMALL CELL LUNG CANCER
     Dosage: 1000MG QD X 14 DAYS PO
     Route: 048
     Dates: start: 20080718
  2. IRESSA [Suspect]
     Indication: NON-SMALL CELL LUNG CANCER
     Dosage: 500MG QD X 14 DAYS PO
     Route: 048
     Dates: start: 20080801

REACTIONS (6)
  - DRY SKIN [None]
  - INFLUENZA LIKE ILLNESS [None]
  - PNEUMONIA [None]
  - PULMONARY EMBOLISM [None]
  - RASH [None]
  - URINARY TRACT INFECTION [None]
